FAERS Safety Report 8054139-2 (Version None)
Quarter: 2012Q1

REPORT INFORMATION
  Report Type: 
  Country: None (occurrence: None)
  Receive Date: 20120118
  Receipt Date: 20120111
  Transmission Date: 20120608
  Serious: Yes (Other)
  Sender: FDA-Public Use
  Company Number: US-PFIZER INC-2010120913

PATIENT
  Sex: Female

DRUGS (3)
  1. ZOLOFT [Suspect]
     Dosage: 150 MG, 1X/DAY
  2. ABILIFY [Suspect]
     Dosage: UNK
  3. DEPAKOTE [Suspect]
     Dosage: UNK MG, UNK

REACTIONS (4)
  - ANXIETY DISORDER [None]
  - PHOBIA [None]
  - IMPAIRED WORK ABILITY [None]
  - DEPRESSION [None]
